FAERS Safety Report 9397962 (Version 1)
Quarter: 2013Q3

REPORT INFORMATION
  Report Type: Spontaneous
  Country: ES (occurrence: ES)
  Receive Date: 20130712
  Receipt Date: 20130712
  Transmission Date: 20140515
  Serious: Yes (Other)
  Sender: FDA-Public Use
  Company Number: PHHY2013ES072019

PATIENT
  Age: 35 Year
  Sex: Female

DRUGS (1)
  1. AMOXICILLIN SANDOZ [Suspect]
     Indication: ANTIBIOTIC THERAPY
     Dosage: 3 DF, DAILY
     Route: 048
     Dates: start: 201212, end: 201212

REACTIONS (3)
  - Suffocation feeling [Recovered/Resolved]
  - Dermatitis allergic [Recovered/Resolved]
  - Skin swelling [Recovered/Resolved]
